FAERS Safety Report 6519572-6 (Version None)
Quarter: 2009Q4

REPORT INFORMATION
  Report Type: 
  Country: None (occurrence: None)
  Receive Date: 20091228
  Receipt Date: 20091210
  Transmission Date: 20100525
  Serious: Yes (Hospitalization)
  Sender: FDA-Public Use
  Company Number: ES-JNJFOC-20091204106

PATIENT
  Age: 22 Year
  Sex: Female

DRUGS (5)
  1. ADOLONTA [Suspect]
     Indication: HEADACHE
     Route: 048
     Dates: start: 20090924, end: 20091016
  2. IBUPROFEN [Suspect]
     Route: 048
     Dates: start: 20090924, end: 20091016
  3. IBUPROFEN [Suspect]
     Indication: HEADACHE
     Route: 048
     Dates: start: 20090924, end: 20091016
  4. KEPPRA [Suspect]
     Indication: CONVULSION
     Route: 048
     Dates: start: 20091009, end: 20091016
  5. OMEPRAZOLE [Concomitant]
     Route: 065

REACTIONS (1)
  - PSYCHOTIC DISORDER [None]
